FAERS Safety Report 25836266 (Version 4)
Quarter: 2025Q4

REPORT INFORMATION
  Report Type: Report from Study
  Country: US (occurrence: US)
  Receive Date: 20250923
  Receipt Date: 20251127
  Transmission Date: 20260118
  Serious: Yes (Hospitalization, Other)
  Sender: TAKEDA
  Company Number: US-TAKEDA-2025TUS080620

PATIENT
  Sex: Male

DRUGS (3)
  1. ADVATE [Suspect]
     Active Substance: ANTIHEMOPHILIC FACTOR, HUMAN RECOMBINANT
     Indication: Product used for unknown indication
     Dosage: 3225 INTERNATIONAL UNIT
  2. ADVATE [Suspect]
     Active Substance: ANTIHEMOPHILIC FACTOR, HUMAN RECOMBINANT
     Dosage: 3090 INTERNATIONAL UNIT
  3. ADVATE [Suspect]
     Active Substance: ANTIHEMOPHILIC FACTOR, HUMAN RECOMBINANT

REACTIONS (8)
  - Muscle haemorrhage [Unknown]
  - Muscle strain [Unknown]
  - Joint injury [Unknown]
  - Arthralgia [Unknown]
  - Vein rupture [Unknown]
  - Pain in extremity [Unknown]
  - Fall [Unknown]
  - Face injury [Unknown]

NARRATIVE: CASE EVENT DATE: 20250908
